FAERS Safety Report 4786930-X (Version None)
Quarter: 2005Q3

REPORT INFORMATION
  Report Type: 
  Country: None (occurrence: None)
  Receive Date: 20050930
  Receipt Date: 20050921
  Transmission Date: 20060218
  Serious: Yes (Hospitalization, Other)
  Sender: FDA-Public Use
  Company Number: 2005132433

PATIENT
  Age: 39 Year
  Sex: Female
  Weight: 98.4306 kg

DRUGS (2)
  1. GEODON [Suspect]
     Indication: BIPOLAR DISORDER
     Dosage: 240 MG (80 MG, 1 IN 1 D), UNKNOWN
     Route: 065
  2. LAMICTAL [Concomitant]

REACTIONS (4)
  - ANXIETY [None]
  - HANGOVER [None]
  - MOOD ALTERED [None]
  - WEIGHT DECREASED [None]
